FAERS Safety Report 4367164-X (Version None)
Quarter: 2004Q2

REPORT INFORMATION
  Report Type: 
  Country: None (occurrence: None)
  Receive Date: 20040528
  Receipt Date: 20040517
  Transmission Date: 20050107
  Serious: Yes (Other)
  Sender: FDA-Public Use
  Company Number: JP-ROCHE-367741

PATIENT
  Age: 43 Year
  Sex: Male

DRUGS (2)
  1. TRETINOIN [Suspect]
     Indication: ACUTE PROMYELOCYTIC LEUKAEMIA
     Dosage: FROM DAYS 1 TO 26.
     Route: 065
  2. TRETINOIN [Suspect]
     Dosage: FROM DAYS 27 TO 54.
     Route: 065

REACTIONS (3)
  - GENITAL ULCERATION [None]
  - NECROTISING FASCIITIS [None]
  - SCROTAL SWELLING [None]
